FAERS Safety Report 5291281-3 (Version None)
Quarter: 2007Q2

REPORT INFORMATION
  Report Type: 
  Country: None (occurrence: None)
  Receive Date: 20070409
  Receipt Date: 20060822
  Transmission Date: 20071010
  Serious: Yes (Other)
  Sender: FDA-Public Use
  Company Number: US-PFIZER INC-2007023375

PATIENT

DRUGS (1)
  1. LIPITOR [Suspect]

REACTIONS (1)
  - BLOOD TRIGLYCERIDES INCREASED [None]
